FAERS Safety Report 25301138 (Version 5)
Quarter: 2025Q2

REPORT INFORMATION
  Report Type: Report from Study
  Country: CA (occurrence: CA)
  Receive Date: 20250512
  Receipt Date: 20250606
  Transmission Date: 20250717
  Serious: Yes (Other)
  Sender: GILEAD
  Company Number: CA-GLAXOSMITHKLINE-CA2023AMR047910

PATIENT
  Age: 60 Year
  Sex: Female

DRUGS (3)
  1. AMBRISENTAN [Suspect]
     Active Substance: AMBRISENTAN
     Indication: Pulmonary arterial hypertension
     Dosage: 10 MG, QD
     Route: 065
     Dates: start: 20230206
  2. ALEVE [Concomitant]
     Active Substance: NAPROXEN SODIUM
     Indication: Product used for unknown indication
     Route: 065
  3. TYLENOL [Concomitant]
     Active Substance: ACETAMINOPHEN
     Indication: Product used for unknown indication
     Route: 065

REACTIONS (7)
  - Colitis [Recovering/Resolving]
  - Nasopharyngitis [Unknown]
  - Somnolence [Unknown]
  - Pruritus [Unknown]
  - Headache [Recovering/Resolving]
  - Sleep disorder [Recovering/Resolving]
  - Epistaxis [Recovering/Resolving]
